FAERS Safety Report 4950601-7 (Version None)
Quarter: 2006Q1

REPORT INFORMATION
  Report Type: 
  Country: None (occurrence: None)
  Receive Date: 20060322
  Receipt Date: 20060109
  Transmission Date: 20060701
  Serious: Yes (Death, Hospitalization, Other)
  Sender: FDA-Public Use
  Company Number: US-MERCK-0601USA01022

PATIENT
  Age: 72 Year
  Sex: Female
  Weight: 114 kg

DRUGS (16)
  1. VIOXX [Suspect]
     Indication: ARTHRITIS
     Route: 048
     Dates: start: 19990101, end: 20030801
  2. LISINOPRIL [Concomitant]
     Route: 065
  3. ALLOPURINOL [Concomitant]
     Route: 065
  4. NORVASC [Concomitant]
     Route: 065
  5. BENICAR [Concomitant]
     Route: 065
  6. NIFEDIPINE [Concomitant]
     Route: 065
  7. HYDRALAZINE [Concomitant]
     Route: 065
  8. COUMADIN [Concomitant]
     Route: 065
  9. FERREX [Concomitant]
     Route: 065
  10. TRILEPTAL [Concomitant]
     Route: 065
  11. FUROSEMIDE [Concomitant]
     Route: 065
  12. PHENYTOIN [Concomitant]
     Route: 065
  13. TOPROL-XL [Concomitant]
     Route: 065
  14. PROCRIT [Concomitant]
     Route: 065
  15. RANITIDINE [Concomitant]
     Route: 065
  16. IRON (UNSPECIFIED) [Concomitant]
     Route: 065

REACTIONS (5)
  - CONVULSION [None]
  - DEATH [None]
  - DEPRESSION [None]
  - JOINT INJURY [None]
  - MYOCARDIAL INFARCTION [None]
